FAERS Safety Report 9225862 (Version 1)
Quarter: 2013Q2

REPORT INFORMATION
  Report Type: Spontaneous
  Country: US (occurrence: US)
  Receive Date: 20130411
  Receipt Date: 20130411
  Transmission Date: 20140414
  Serious: No
  Sender: FDA-Public Use
  Company Number: US-ASTELLAS-2012US009880

PATIENT
  Sex: Female

DRUGS (2)
  1. PROTOPIC [Suspect]
     Indication: ECZEMA
     Dosage: 0.1 %, BID
     Route: 061
     Dates: start: 2012
  2. PROTOPIC [Suspect]
     Indication: VITILIGO
     Dosage: 0.1 %, UID/QD
     Route: 061
     Dates: start: 2012

REACTIONS (4)
  - Off label use [Unknown]
  - Drug ineffective for unapproved indication [Unknown]
  - Drug dose omission [Unknown]
  - Acne [Unknown]
